FAERS Safety Report 8457411 (Version 5)
Quarter: 2012Q4

REPORT INFORMATION
  Report Type: 
  Country: DE (occurrence: DE)
  Receive Date: 20120314
  Receipt Date: 20121120
  Transmission Date: 20130627
  Serious: Yes (Death)
  Sender: FDA-Public Use
  Company Number: DE-B.I. PHARMACEUTICALS,INC./RIDGEFIELD-2012-DE-00710DE

PATIENT
  Age: 82 Year
  Sex: Female
  Weight: 55 kg

DRUGS (4)
  1. PRADAXA [Suspect]
     Indication: ATRIAL FIBRILLATION
     Dosage: 220 mg
     Dates: start: 20120110
  2. PRADAXA [Suspect]
     Indication: ATRIAL FIBRILLATION
  3. RAMIPRIL [Concomitant]
     Indication: HYPERTENSION
     Dosage: 10 mg
     Dates: start: 20110802
  4. AMLODIPIN [Concomitant]
     Indication: HYPERTENSION
     Dosage: 10 mg
     Dates: start: 20110818

REACTIONS (1)
  - Death [Fatal]
